FAERS Safety Report 8589410-9 (Version None)
Quarter: 2012Q3

REPORT INFORMATION
  Report Type: 
  Country: None (occurrence: None)
  Receive Date: 20120813
  Receipt Date: 20120802
  Transmission Date: 20120928
  Serious: Yes (Hospitalization)
  Sender: FDA-Public Use
  Company Number: GB-ASTRAZENECA-2012SE34223

PATIENT
  Age: 89 Year
  Sex: Female
  Weight: 58 kg

DRUGS (9)
  1. WARFARIN SODIUM [Concomitant]
     Indication: ATRIAL FIBRILLATION
     Route: 048
     Dates: start: 20110501
  2. CALCEOS [Concomitant]
     Indication: OSTEOPOROSIS
     Route: 048
     Dates: start: 20120401
  3. ISOSORBID MONONITRATE [Concomitant]
     Indication: MYOCARDIAL ISCHAEMIA
     Route: 048
     Dates: start: 19970101
  4. DORZOLAMIDE [Concomitant]
     Indication: GLAUCOMA
     Dosage: TWICE DAILY RIGHT EYE
     Route: 047
     Dates: start: 20050601
  5. SIMVASTATIN [Concomitant]
     Indication: MYOCARDIAL ISCHAEMIA
     Route: 048
     Dates: start: 20020201
  6. ALENDRONATE SODIUM [Concomitant]
     Indication: OSTEOPOROSIS
     Route: 048
     Dates: start: 20101220
  7. CARBOMER [Concomitant]
     Indication: GLAUCOMA
     Dosage: TDS BOTH EYES
     Route: 047
     Dates: start: 20101001
  8. CITALOPRAM [Concomitant]
  9. CASODEX [Suspect]
     Route: 048
     Dates: start: 20120509, end: 20120519

REACTIONS (3)
  - WRONG DRUG ADMINISTERED [None]
  - AGITATION [None]
  - DEMENTIA [None]
